FAERS Safety Report 7973337-7 (Version None)
Quarter: 2011Q4

REPORT INFORMATION
  Report Type: 
  Country: None (occurrence: None)
  Receive Date: 20111213
  Receipt Date: 20110711
  Transmission Date: 20120403
  Serious: No
  Sender: FDA-Public Use
  Company Number: US-AMGEN-USASP2011000817

PATIENT
  Age: 78 Year
  Sex: Male
  Weight: 112.47 kg

DRUGS (22)
  1. METFORMIN HCL [Concomitant]
     Dosage: 1000 MG, BID
  2. NIASPAN [Concomitant]
     Dosage: 1000 MG, BID
  3. TOPROL-XL [Concomitant]
     Dosage: 50 MG, UNK
  4. CENTRUM                            /01536001/ [Concomitant]
     Dosage: UNK
  5. FLOMAX [Concomitant]
     Dosage: 0.4 MG, UNK
  6. VITAMIN B-12 [Concomitant]
     Dosage: 1000 MUG, QMO
  7. PROCRIT [Suspect]
     Indication: MYELODYSPLASTIC SYNDROME
     Dosage: 40000 IU, QWK
     Dates: start: 20091101
  8. ASPIRIN [Concomitant]
     Dosage: 81 MG, BID
  9. KLOR-CON [Concomitant]
     Dosage: 20 MEQ, UNK
  10. LIPITOR [Concomitant]
     Dosage: 5 MG, QD
  11. VITAMIN D [Concomitant]
     Dosage: 1.25 MG, UNK
  12. CALCIUM WITH VITAMIN D             /00944201/ [Concomitant]
     Dosage: UNK
  13. LASIX [Concomitant]
     Dosage: 40 MG, UNK
  14. LANTUS [Concomitant]
     Dosage: 46 UNIT, QD
  15. PROCRIT [Suspect]
     Dosage: 60000 UNIT, QWK
     Dates: start: 20110616
  16. ZANTAC                             /00550801/ [Concomitant]
     Dosage: 150 MG, QD
  17. ALLOPURINOL [Concomitant]
     Indication: GOUT
     Dosage: UNK
     Dates: start: 20110301, end: 20110101
  18. PROCRIT [Suspect]
     Dosage: 4000 UNIT, QWK
     Dates: start: 20110209, end: 20110609
  19. PROSCAR [Concomitant]
     Dosage: 5 MG, UNK
  20. FOSAMAX [Concomitant]
     Dosage: UNK
  21. PROCRIT [Suspect]
     Dosage: 40000 IU, QWK
     Dates: start: 20110101
  22. ARANESP [Suspect]
     Indication: MYELODYSPLASTIC SYNDROME
     Dosage: UNK UNK, Q2WK
     Dates: start: 20101220, end: 20110101

REACTIONS (9)
  - FEELING HOT [None]
  - ALLOIMMUNISATION [None]
  - THERAPEUTIC RESPONSE DECREASED [None]
  - RESPIRATORY TRACT INFECTION [None]
  - ARTHRITIS [None]
  - GOUT [None]
  - MALAISE [None]
  - TENDONITIS [None]
  - HEADACHE [None]
